FAERS Safety Report 20821129 (Version 1)
Quarter: 2022Q2

REPORT INFORMATION
  Report Type: Spontaneous
  Country: US (occurrence: US)
  Receive Date: 20220512
  Receipt Date: 20220512
  Transmission Date: 20220721
  Serious: No
  Sender: FDA-Public Use
  Company Number: US-PFIZER INC-202101383202

PATIENT
  Age: 69 Year
  Sex: Female

DRUGS (2)
  1. XELJANZ XR [Suspect]
     Active Substance: TOFACITINIB CITRATE
     Indication: Rheumatoid arthritis
     Dosage: 11 MG, 1X/DAY
     Route: 048
     Dates: start: 202008
  2. HUMIRA [Concomitant]
     Active Substance: ADALIMUMAB
     Dosage: UNK (TWICE MONTHLY)

REACTIONS (3)
  - Product prescribing issue [Unknown]
  - Off label use [Unknown]
  - Depressed mood [Not Recovered/Not Resolved]
